FAERS Safety Report 18066851 (Version 1)
Quarter: 2020Q3

REPORT INFORMATION
  Report Type: Spontaneous
  Country: US (occurrence: US)
  Receive Date: 20200724
  Receipt Date: 20200724
  Transmission Date: 20201103
  Serious: Yes (Hospitalization, Other)
  Sender: FDA-Public Use
  Company Number: US-SHIRE-US202012045

PATIENT
  Age: 60 Year
  Sex: Female
  Weight: 60 kg

DRUGS (4)
  1. GATTEX [Suspect]
     Active Substance: TEDUGLUTIDE\WATER
     Dosage: 5 MILLIGRAM
     Route: 058
     Dates: start: 201912
  2. GATTEX [Suspect]
     Active Substance: TEDUGLUTIDE\WATER
     Dosage: 5 MILLIGRAM
     Route: 058
     Dates: start: 20191223
  3. GATTEX [Suspect]
     Active Substance: TEDUGLUTIDE\WATER
     Dosage: 0.3 UNK, 1X/DAY:QD
     Route: 058
     Dates: start: 20131029
  4. GATTEX [Suspect]
     Active Substance: TEDUGLUTIDE\WATER
     Indication: SHORT-BOWEL SYNDROME
     Dosage: 0.3 UNK, 1X/DAY:QD
     Route: 058
     Dates: start: 20131023

REACTIONS (5)
  - Pneumonia [Recovering/Resolving]
  - Oral surgery [Recovering/Resolving]
  - Dental operation [Unknown]
  - Bacterial infection [Recovering/Resolving]
  - Sepsis [Recovering/Resolving]

NARRATIVE: CASE EVENT DATE: 20200306
